FAERS Safety Report 21167562 (Version 1)
Quarter: 2022Q3

REPORT INFORMATION
  Report Type: Spontaneous
  Country: US (occurrence: None)
  Receive Date: 20220803
  Receipt Date: 20220803
  Transmission Date: 20221027
  Serious: Yes (Death)
  Sender: FDA-Public Use
  Company Number: None

PATIENT
  Age: 84 Year
  Sex: Female
  Weight: 80.1 kg

DRUGS (1)
  1. MIRCERA [Suspect]
     Active Substance: METHOXY POLYETHYLENE GLYCOL-EPOETIN BETA
     Indication: Acute kidney injury
     Dosage: FREQUENCY : ONCE;?
     Dates: start: 20220719, end: 20220719

REACTIONS (6)
  - Haemodialysis [None]
  - Agonal respiration [None]
  - Pulse absent [None]
  - Dyskinesia [None]
  - Unresponsive to stimuli [None]
  - Blood pressure increased [None]

NARRATIVE: CASE EVENT DATE: 20220719
